FAERS Safety Report 9714805 (Version 2)
Quarter: 2013Q4

REPORT INFORMATION
  Report Type: Report from Study
  Country: US (occurrence: US)
  Receive Date: 20131126
  Receipt Date: 20131126
  Transmission Date: 20140711
  Serious: Yes (Other)
  Sender: FDA-Public Use
  Company Number: US-US-EMD SERONO, INC.-7238923

PATIENT
  Age: 59 Year
  Sex: Female

DRUGS (3)
  1. REBIF [Suspect]
     Indication: MULTIPLE SCLEROSIS
     Route: 058
     Dates: start: 20130627
  2. REBIF [Suspect]
     Dates: start: 201309
  3. CITALOPRAM [Concomitant]
     Indication: DEPRESSION

REACTIONS (6)
  - Suicidal ideation [Unknown]
  - Depression [Recovering/Resolving]
  - Hot flush [Recovered/Resolved]
  - Anger [Not Recovered/Not Resolved]
  - Influenza like illness [Not Recovered/Not Resolved]
  - Injection site bruising [Not Recovered/Not Resolved]
